FAERS Safety Report 7202819-0 (Version None)
Quarter: 2010Q4

REPORT INFORMATION
  Report Type: 
  Country: None (occurrence: None)
  Receive Date: 20101229
  Receipt Date: 20101224
  Transmission Date: 20110411
  Serious: Yes (Other)
  Sender: FDA-Public Use
  Company Number: DE-PFIZER INC-2010179344

PATIENT
  Sex: Female

DRUGS (1)
  1. LEVONORGESTREL + ETHINYL ESTRADIOL [Suspect]
     Indication: CONTRACEPTION

REACTIONS (2)
  - PSYCHOSEXUAL DISORDER [None]
  - VULVOVAGINAL MYCOTIC INFECTION [None]
